FAERS Safety Report 21300271 (Version 1)
Quarter: 2022Q3

REPORT INFORMATION
  Report Type: Spontaneous
  Country: JP (occurrence: JP)
  Receive Date: 20220906
  Receipt Date: 20220906
  Transmission Date: 20221027
  Serious: Yes (Other)
  Sender: FDA-Public Use
  Company Number: JP-TAKEDA-2022TJP066844

PATIENT
  Age: 4 Decade
  Sex: Female

DRUGS (3)
  1. TRINTELLIX [Suspect]
     Active Substance: VORTIOXETINE HYDROBROMIDE
     Indication: Depression
     Dosage: UNK
     Route: 048
  2. TRINTELLIX [Suspect]
     Active Substance: VORTIOXETINE HYDROBROMIDE
     Dosage: 20 MILLIGRAM, QD
     Route: 048
     Dates: end: 202207
  3. TRINTELLIX [Suspect]
     Active Substance: VORTIOXETINE HYDROBROMIDE
     Dosage: UNK
     Route: 048

REACTIONS (3)
  - Pituitary tumour [Unknown]
  - Hyperprolactinaemia [Unknown]
  - Menstrual disorder [Unknown]

NARRATIVE: CASE EVENT DATE: 20220701
